FAERS Safety Report 16637102 (Version 1)
Quarter: 2019Q3

REPORT INFORMATION
  Report Type: Spontaneous
  Country: GB (occurrence: GB)
  Receive Date: 20190726
  Receipt Date: 20190726
  Transmission Date: 20191004
  Serious: Yes (Hospitalization)
  Sender: FDA-Public Use
  Company Number: GB-TEVA-2019-GB-1083724

PATIENT
  Age: 71 Year
  Sex: Male

DRUGS (10)
  1. CLOMIPRAMINE [Concomitant]
     Active Substance: CLOMIPRAMINE
     Dosage: IN THE MORNING.
     Route: 048
  2. OMEPRAZOLE. [Concomitant]
     Active Substance: OMEPRAZOLE
     Dosage: IN THE MORNING.
     Route: 048
     Dates: start: 20190507, end: 20190528
  3. PRAVASTATIN. [Concomitant]
     Active Substance: PRAVASTATIN
     Dosage: AT NIGHT.
     Route: 048
  4. FILGRASTIM [Concomitant]
     Active Substance: FILGRASTIM
     Dosage: 30MILLION UNITS/0.5ML.
     Route: 030
     Dates: start: 20190515, end: 20190518
  5. TINZAPARIN SODIUM [Concomitant]
     Active Substance: TINZAPARIN SODIUM
     Dosage: 12,000UNITS/0.6ML.
     Route: 030
  6. ATENOLOL. [Suspect]
     Active Substance: ATENOLOL
     Dosage: IN THE MORNING.
     Route: 048
     Dates: end: 20190515
  7. SODIUM DIHYDROGEN PHOSPHATE [Concomitant]
     Active Substance: SODIUM PHOSPHATE
     Dosage: 7.74 GRAM FOR EVERY 1 DAYS
     Route: 048
     Dates: start: 20190518, end: 20190520
  8. CHLORHEXIDINE [Concomitant]
     Active Substance: CHLORHEXIDINE
     Dosage: 40 ML FOR  EVERY 1 DAYS
     Route: 004
  9. ACICLOVIR [Concomitant]
     Active Substance: ACYCLOVIR
     Dosage: 800 MILLIGRAM FOR EVERY1 DAYS
     Route: 048
     Dates: start: 20190507, end: 20190528
  10. COTRIMOXAZOLE [Concomitant]
     Active Substance: SULFAMETHOXAZOLE\TRIMETHOPRIM
     Dosage: MONDAY, WEDNESDAY, FRIDAY. 160MG/800MG.
     Route: 048
     Dates: start: 20190507

REACTIONS (2)
  - Dizziness [Unknown]
  - Tachycardia [Recovered/Resolved]

NARRATIVE: CASE EVENT DATE: 20190517
